FAERS Safety Report 6865851-2 (Version None)
Quarter: 2010Q3

REPORT INFORMATION
  Report Type: 
  Country: None (occurrence: None)
  Receive Date: 20100722
  Receipt Date: 20100713
  Transmission Date: 20110219
  Serious: Yes (Hospitalization)
  Sender: FDA-Public Use
  Company Number: US-BIOGENIDEC-2010BI021388

PATIENT
  Age: 54 Year
  Sex: Female
  Weight: 71 kg

DRUGS (12)
  1. TYSABRI [Suspect]
     Indication: MULTIPLE SCLEROSIS
     Route: 042
     Dates: start: 20091230, end: 20100601
  2. TYSABRI [Suspect]
     Route: 042
     Dates: start: 20091230, end: 20100601
  3. TYSABRI [Suspect]
     Route: 042
     Dates: start: 20091230, end: 20100601
  4. TYSABRI [Suspect]
     Route: 042
     Dates: start: 20091230, end: 20100601
  5. VYTORIN [Concomitant]
     Indication: BLOOD CHOLESTEROL INCREASED
  6. ZANAFLEX [Concomitant]
     Indication: MUSCLE SPASTICITY
  7. BACLOFEN [Concomitant]
     Indication: MUSCLE SPASTICITY
  8. ZOLPIDEM [Concomitant]
     Indication: INSOMNIA
  9. FLOMAX [Concomitant]
     Indication: URINARY INCONTINENCE
  10. HYDROCHLOROTHIAZIDE [Concomitant]
     Indication: HYPERTENSION
  11. AMIODIPINE [Concomitant]
     Indication: HYPERTENSION
  12. WARFARIN SODIUM [Concomitant]
     Indication: THROMBOSIS PROPHYLAXIS

REACTIONS (3)
  - OVARIAN CANCER METASTATIC [None]
  - RESPIRATORY FAILURE [None]
  - SEPSIS [None]
